FAERS Safety Report 8663626 (Version 2)
Quarter: 2012Q4

REPORT INFORMATION
  Report Type: 
  Country: US (occurrence: US)
  Receive Date: 20120713
  Receipt Date: 20121102
  Transmission Date: 20130627
  Serious: Yes (Death, Hospitalization)
  Sender: FDA-Public Use
  Company Number: US-GENZYME-FABR-1002570

PATIENT

DRUGS (5)
  1. FABRAZYME [Suspect]
     Indication: FABRY^S DISEASE
     Dosage: 90 mg, once
     Route: 042
     Dates: start: 20120521, end: 20120521
  2. FABRAZYME [Suspect]
     Dosage: 1 mg/kg, q2w
     Route: 042
     Dates: start: 20120416
  3. FABRAZYME [Suspect]
     Dosage: 1 mg/kg, q2w
     Route: 042
     Dates: start: 200310, end: 20100719
  4. TYLENOL [Concomitant]
     Indication: PREMEDICATION
     Dosage: 650 mg, UNK
     Route: 065
  5. BENADRYL [Concomitant]
     Indication: PREMEDICATION
     Dosage: 50 mg, UNK
     Route: 065

REACTIONS (1)
  - Pneumonia aspiration [Fatal]
